FAERS Safety Report 8382977-5 (Version None)
Quarter: 2012Q2

REPORT INFORMATION
  Report Type: 
  Country: None (occurrence: None)
  Receive Date: 20120522
  Receipt Date: 20120504
  Transmission Date: 20120825
  Serious: Yes (Hospitalization)
  Sender: FDA-Public Use
  Company Number: 217398

PATIENT
  Age: 74 Year
  Sex: Female
  Weight: 82 kg

DRUGS (5)
  1. LERCANIDIPINE [Concomitant]
  2. INNOHEP [Suspect]
     Indication: DEEP VEIN THROMBOSIS
     Dosage: 15000 IU (15000 IU, 1 IN 1 D), SUBCUTANEOUS; PE
     Route: 058
     Dates: start: 20120222
  3. METOPROLOL SUCCINATE [Concomitant]
  4. RAMIPRIL [Concomitant]
  5. IBUPROFEN [Concomitant]

REACTIONS (2)
  - FALL [None]
  - FRACTURE [None]
